FAERS Safety Report 9665048 (Version 2)
Quarter: 2014Q1

REPORT INFORMATION
  Report Type: Spontaneous
  Country: IT (occurrence: IT)
  Receive Date: 20131101
  Receipt Date: 20140113
  Transmission Date: 20141002
  Serious: Yes (Other)
  Sender: FDA-Public Use
  Company Number: PHHY2013IT121761

PATIENT
  Age: 63 Year
  Sex: Female

DRUGS (3)
  1. SIMVASTATIN [Suspect]
     Indication: HYPERCHOLESTEROLAEMIA
     Dosage: 20 MG, QD
     Route: 048
     Dates: start: 20130928, end: 20131006
  2. HYDROCHLOROTHIAZIDE W/OLMESARTAN [Concomitant]
     Indication: HYPERTENSION
     Dosage: 32.5 MG,
  3. BISOPROLOL [Concomitant]
     Indication: HYPERTENSION
     Dosage: 1.25 MG
     Route: 048

REACTIONS (2)
  - Syncope [Unknown]
  - Rhabdomyolysis [Unknown]
